FAERS Safety Report 15397872 (Version 1)
Quarter: 2018Q3

REPORT INFORMATION
  Report Type: Spontaneous
  Country: IT (occurrence: IT)
  Receive Date: 20180918
  Receipt Date: 20180918
  Transmission Date: 20181010
  Serious: Yes (Hospitalization)
  Sender: FDA-Public Use
  Company Number: IT-ASTRAZENECA-2018SF15890

PATIENT
  Age: 71 Year
  Sex: Male

DRUGS (7)
  1. XANAX [Concomitant]
     Active Substance: ALPRAZOLAM
  2. BISOPROLOL [Concomitant]
     Active Substance: BISOPROLOL
  3. ALDACTONE [Concomitant]
     Active Substance: SPIRONOLACTONE
  4. PANTORC [Concomitant]
     Active Substance: PANTOPRAZOLE SODIUM
  5. TORVAST [Concomitant]
     Active Substance: ATORVASTATIN
  6. BRILIQUE [Suspect]
     Active Substance: TICAGRELOR
     Indication: ACUTE MYOCARDIAL INFARCTION
     Route: 048
     Dates: start: 20110415, end: 20180803
  7. LASIX [Concomitant]
     Active Substance: FUROSEMIDE

REACTIONS (3)
  - Pain [Recovering/Resolving]
  - Rectal haemorrhage [Recovering/Resolving]
  - Medication error [Recovering/Resolving]

NARRATIVE: CASE EVENT DATE: 20180802
